FAERS Safety Report 18327582 (Version 1)
Quarter: 2020Q3

REPORT INFORMATION
  Report Type: Spontaneous
  Country: NO (occurrence: NO)
  Receive Date: 20200930
  Receipt Date: 20200930
  Transmission Date: 20201103
  Serious: Yes (Hospitalization, Other)
  Sender: FDA-Public Use
  Company Number: NO-AUROBINDO-AUR-APL-2020-047397

PATIENT
  Age: 59 Year
  Sex: Male
  Weight: 97 kg

DRUGS (6)
  1. NAPROXEN ORION 250 MG TABLET [Suspect]
     Active Substance: NAPROXEN
     Indication: SCIATICA
  2. NAPROXEN ORION 250 MG TABLET [Suspect]
     Active Substance: NAPROXEN
     Indication: SPINAL CORD HERNIATION
     Dosage: 250 MILLIGRAM, 3 TIMES A DAY
     Route: 065
     Dates: start: 20200807
  3. VOLTAREN [Concomitant]
     Active Substance: DICLOFENAC SODIUM
     Indication: BACK PAIN
     Dosage: UNK
     Route: 065
  4. VOLTAREN [Concomitant]
     Active Substance: DICLOFENAC SODIUM
     Indication: SCIATICA
  5. PARACETAMOL [Concomitant]
     Active Substance: ACETAMINOPHEN
     Indication: PAIN
     Dosage: UNK
     Route: 065
  6. PARACETAMOL [Concomitant]
     Active Substance: ACETAMINOPHEN
     Indication: HEADACHE

REACTIONS (4)
  - Dyspnoea [Recovering/Resolving]
  - Intestinal haemorrhage [Recovering/Resolving]
  - Blood count abnormal [Recovering/Resolving]
  - Illness [Recovering/Resolving]

NARRATIVE: CASE EVENT DATE: 202008
